FAERS Safety Report 13086152 (Version 1)
Quarter: 2017Q1

REPORT INFORMATION
  Report Type: Spontaneous
  Country: AU (occurrence: AU)
  Receive Date: 20170104
  Receipt Date: 20170104
  Transmission Date: 20170428
  Serious: Yes (Death, Other)
  Sender: FDA-Public Use
  Company Number: AU-MYLANLABS-2016M1058689

PATIENT

DRUGS (1)
  1. METHOTREXATE. [Suspect]
     Active Substance: METHOTREXATE
     Indication: RHEUMATOID ARTHRITIS
     Dosage: FOR OVER 20 YEARS
     Route: 048

REACTIONS (7)
  - Vasculitis necrotising [Fatal]
  - Epstein-Barr virus infection [Fatal]
  - Mucocutaneous ulceration [Fatal]
  - Cardiac arrest [Fatal]
  - Ulcer haemorrhage [Fatal]
  - Fungal infection [Fatal]
  - Neutropenia [Recovered/Resolved]
